FAERS Safety Report 8360010 (Version 3)
Quarter: 2013Q1

REPORT INFORMATION
  Report Type: Spontaneous
  Country: GB (occurrence: None)
  Receive Date: 20120117
  Receipt Date: 20130122
  Transmission Date: 20140127
  Serious: Yes (Hospitalization)
  Sender: FDA-Public Use
  Company Number: 2012AP000090

PATIENT
  Age: 61 Year
  Sex: Female

DRUGS (18)
  1. LEVOFLOXACIN (LEVOFLOXACIN) [Suspect]
     Indication: PNEUMONIA
     Dosage: 500 MG, QD, PO
     Route: 048
     Dates: start: 20111202, end: 20111204
  2. ALLOPURINOL [Suspect]
     Indication: GOUT
     Dosage: 100 MG, PO, QD
     Route: 048
     Dates: start: 20111202, end: 20111229
  3. AMINOPHYLLINE [Concomitant]
  4. BUMETANIDE [Concomitant]
  5. CODEINE SULFATE [Concomitant]
  6. CODEINE SULFATE [Concomitant]
  7. DIGOXIN (DIGOXIN) [Concomitant]
  8. HUMALOG [Concomitant]
  9. LANTUS [Concomitant]
  10. LOSARTAN POTASSIUM [Concomitant]
  11. OMEPRAZOLE [Concomitant]
  12. ACETAMINOPHEN [Concomitant]
  13. PRAVASTATIN [Concomitant]
  14. SALBUTAMOL (SALBUTAMOL) [Concomitant]
  15. SPIRIVA [Concomitant]
  16. SYMBICORT [Concomitant]
  17. DILTIAZEM HYDROCHLORIDE [Concomitant]
  18. WARFARIN SODIUM [Concomitant]

REACTIONS (1)
  - Acute generalised exanthematous pustulosis [None]
